FAERS Safety Report 12682806 (Version 1)
Quarter: 2016Q3

REPORT INFORMATION
  Report Type: Spontaneous
  Country: GB (occurrence: GB)
  Receive Date: 20160825
  Receipt Date: 20160825
  Transmission Date: 20161109
  Serious: Yes (Other)
  Sender: FDA-Public Use
  Company Number: GB-CIPLA LTD.-2016GB17492

PATIENT

DRUGS (4)
  1. LAMIVUDINE. [Suspect]
     Active Substance: LAMIVUDINE
     Indication: HEPATITIS B
  2. TENOFOVIR [Suspect]
     Active Substance: TENOFOVIR
     Indication: HEPATITIS B
  3. TENOFOVIR [Suspect]
     Active Substance: TENOFOVIR
     Indication: HEPATITIS D
     Dosage: UNK
     Route: 065
  4. LAMIVUDINE. [Suspect]
     Active Substance: LAMIVUDINE
     Indication: HEPATITIS D
     Dosage: UNK
     Route: 065

REACTIONS (3)
  - Viral load increased [Unknown]
  - Gastric ulcer [Unknown]
  - Treatment noncompliance [Unknown]
